FAERS Safety Report 14012326 (Version 2)
Quarter: 2017Q4

REPORT INFORMATION
  Report Type: Report from Study
  Country: US (occurrence: US)
  Receive Date: 20170926
  Receipt Date: 20171005
  Transmission Date: 20180321
  Serious: Yes (Hospitalization)
  Sender: FDA-Public Use
  Company Number: US-TEVA-809536USA

PATIENT
  Age: 37 Year

DRUGS (1)
  1. CINQAIR [Suspect]
     Active Substance: RESLIZUMAB
     Route: 042
     Dates: start: 20170920

REACTIONS (3)
  - Adverse reaction [Unknown]
  - Throat tightness [Unknown]
  - Throat irritation [Unknown]

NARRATIVE: CASE EVENT DATE: 20170920
